FAERS Safety Report 10529275 (Version 6)
Quarter: 2015Q3

REPORT INFORMATION
  Report Type: Report from Study
  Country: DE (occurrence: DE)
  Receive Date: 20141020
  Receipt Date: 20150902
  Transmission Date: 20151125
  Serious: Yes (Other)
  Sender: FDA-Public Use
  Company Number: PHHY2014DE046752

PATIENT
  Age: 55 Year
  Sex: Female
  Weight: 61 kg

DRUGS (12)
  1. SEEBRI BREEZHALER [Suspect]
     Active Substance: GLYCOPYRROLATE
     Dosage: 44 UG, QD
     Route: 055
     Dates: start: 20140331, end: 20150505
  2. QVA149 [Suspect]
     Active Substance: INVESTIGATIONAL PRODUCT
     Indication: CHRONIC OBSTRUCTIVE PULMONARY DISEASE
     Dosage: 1 DF, QD (43/85 UG)
     Route: 055
     Dates: start: 20140313, end: 20140331
  3. FORMOTOP [Concomitant]
     Active Substance: FORMOTEROL FUMARATE
     Indication: DIZZINESS
     Dosage: 12 UG, UNK
     Route: 065
     Dates: start: 20140401
  4. SEEBRI BREEZHALER [Suspect]
     Active Substance: GLYCOPYRROLATE
     Indication: CHRONIC OBSTRUCTIVE PULMONARY DISEASE
     Dosage: 44 UG, QD
     Route: 055
     Dates: start: 20130620, end: 20140312
  5. CETIRIZIN [Concomitant]
     Active Substance: CETIRIZINE HYDROCHLORIDE
     Indication: HYPERSENSITIVITY
     Dosage: 1 DF, QD
     Route: 065
  6. FORMOTOP [Concomitant]
     Active Substance: FORMOTEROL FUMARATE
     Indication: CIRCULATORY COLLAPSE
     Dosage: 36 UG, UNK
     Route: 065
     Dates: start: 20140331
  7. SALBUTAMOL [Suspect]
     Active Substance: ALBUTEROL
     Indication: CHRONIC OBSTRUCTIVE PULMONARY DISEASE
     Dosage: 0.1 MG, PRN
     Route: 065
  8. SYMBICORT [Concomitant]
     Active Substance: BUDESONIDE\FORMOTEROL FUMARATE DIHYDRATE
     Indication: CHRONIC OBSTRUCTIVE PULMONARY DISEASE
     Dosage: 4 DF, QD
     Route: 065
     Dates: start: 20140702
  9. SALBUTAMOL 1 A PHARMA [Suspect]
     Active Substance: ALBUTEROL
     Indication: PRODUCT USED FOR UNKNOWN INDICATION
     Dosage: UNK UNK, PRN
     Route: 065
  10. NOVOPULMON [Concomitant]
     Active Substance: BUDESONIDE
     Indication: PRODUCT USED FOR UNKNOWN INDICATION
     Dosage: 400 UG, BID
     Route: 065
     Dates: start: 20130418, end: 20140702
  11. FORMOTOP [Concomitant]
     Active Substance: FORMOTEROL FUMARATE
     Indication: THROAT IRRITATION
  12. FORMOTOP [Concomitant]
     Active Substance: FORMOTEROL FUMARATE
     Indication: DYSPNOEA

REACTIONS (12)
  - Dizziness [Recovered/Resolved]
  - Nasopharyngitis [Recovered/Resolved]
  - Cough [Recovered/Resolved]
  - Dermatitis [Recovering/Resolving]
  - Erythema [Recovered/Resolved]
  - Dyspnoea [Recovered/Resolved]
  - Throat irritation [Recovered/Resolved]
  - Productive cough [Recovered/Resolved]
  - Circulatory collapse [Recovered/Resolved]
  - Anaphylactic reaction [Recovered/Resolved]
  - Skin reaction [Recovered/Resolved]
  - Skin swelling [Recovered/Resolved]

NARRATIVE: CASE EVENT DATE: 20140313
